FAERS Safety Report 5577492-8 (Version None)
Quarter: 2007Q4

REPORT INFORMATION
  Report Type: 
  Country: None (occurrence: None)
  Receive Date: 20071228
  Receipt Date: 20071218
  Transmission Date: 20080405
  Serious: Yes (Death, Other)
  Sender: FDA-Public Use
  Company Number: AU-PFIZER INC-2007107297

PATIENT
  Age: 85 Year
  Sex: Male

DRUGS (4)
  1. LIPITOR [Suspect]
  2. FELODIPINE [Concomitant]
  3. COVERSYL [Concomitant]
  4. OMEPRAZOLE [Concomitant]

REACTIONS (1)
  - HAEMORRHAGIC STROKE [None]
